FAERS Safety Report 9464728 (Version 1)
Quarter: 2013Q3

REPORT INFORMATION
  Report Type: Spontaneous
  Country: US (occurrence: US)
  Receive Date: 20130819
  Receipt Date: 20130819
  Transmission Date: 20140515
  Serious: Yes (Other)
  Sender: FDA-Public Use
  Company Number: US-GLAXOSMITHKLINE-A1037355A

PATIENT
  Age: 57 Year
  Sex: Male

DRUGS (1)
  1. SORIATANE [Suspect]
     Indication: RASH
     Dosage: 35MG PER DAY
     Route: 048
     Dates: start: 201305, end: 201306

REACTIONS (4)
  - Haemorrhage [Not Recovered/Not Resolved]
  - Skin exfoliation [Not Recovered/Not Resolved]
  - Pain in extremity [Not Recovered/Not Resolved]
  - Off label use [Unknown]
